FAERS Safety Report 13303568 (Version 2)
Quarter: 2017Q1

REPORT INFORMATION
  Report Type: Report from Study
  Country: US (occurrence: US)
  Receive Date: 20170307
  Receipt Date: 20170321
  Transmission Date: 20170428
  Serious: Yes (Death, Hospitalization)
  Sender: FDA-Public Use
  Company Number: US-ACTELION-A-US2016-134572

PATIENT
  Age: 53 Year
  Sex: Female

DRUGS (14)
  1. METOLAZONE. [Concomitant]
     Active Substance: METOLAZONE
     Dosage: UNK
  2. COLCRYS [Concomitant]
     Active Substance: COLCHICINE
     Dosage: UNK
  3. TRACLEER [Suspect]
     Active Substance: BOSENTAN
     Indication: PULMONARY ARTERIAL HYPERTENSION
     Dosage: 125 MG, BID
     Route: 048
     Dates: end: 20170225
  4. SPIRONOLACTONE. [Concomitant]
     Active Substance: SPIRONOLACTONE
     Dosage: UNK
  5. ADEMPAS [Concomitant]
     Active Substance: RIOCIGUAT
  6. LITHIUM CARBONATE. [Concomitant]
     Active Substance: LITHIUM CARBONATE
     Dosage: UNK
  7. OXYGEN. [Concomitant]
     Active Substance: OXYGEN
  8. REVATIO [Concomitant]
     Active Substance: SILDENAFIL CITRATE
     Dosage: UNK
  9. ALLOPURINOL. [Concomitant]
     Active Substance: ALLOPURINOL
     Dosage: UNK
  10. LORATADINE. [Concomitant]
     Active Substance: LORATADINE
     Dosage: UNK
  11. FUROSEMIDE. [Concomitant]
     Active Substance: FUROSEMIDE
     Dosage: UNK
  12. REMODULIN [Concomitant]
     Active Substance: TREPROSTINIL
     Dosage: 171 NG/KG, PER MIN
     Route: 042
     Dates: start: 20100609
  13. GABAPENTIN. [Concomitant]
     Active Substance: GABAPENTIN
     Dosage: UNK
  14. WARFARIN SODIUM. [Concomitant]
     Active Substance: WARFARIN SODIUM
     Dosage: UNK

REACTIONS (12)
  - Chest discomfort [Unknown]
  - Epistaxis [Not Recovered/Not Resolved]
  - Painful respiration [Not Recovered/Not Resolved]
  - Cough [Not Recovered/Not Resolved]
  - Oxygen consumption increased [Unknown]
  - Sinusitis [Unknown]
  - Dyspnoea [Unknown]
  - Death [Fatal]
  - Altered state of consciousness [Not Recovered/Not Resolved]
  - Condition aggravated [Not Recovered/Not Resolved]
  - Dyspnoea at rest [Unknown]
  - Nasal congestion [Not Recovered/Not Resolved]

NARRATIVE: CASE EVENT DATE: 20160311
